FAERS Safety Report 5101899-6 (Version None)
Quarter: 2006Q3

REPORT INFORMATION
  Report Type: 
  Country: None (occurrence: None)
  Receive Date: 20060907
  Receipt Date: 20060821
  Transmission Date: 20061208
  Serious: Yes (Hospitalization, Other)
  Sender: FDA-Public Use
  Company Number: US200606001083

PATIENT
  Sex: Female

DRUGS (5)
  1. HUMALOG [Suspect]
     Indication: DIABETES MELLITUS
  2. HUMALOG MIX 75/25 [Suspect]
     Indication: DIABETES MELLITUS
  3. HUMULIN 70/30 [Suspect]
     Indication: DIABETES MELLITUS
  4. HUMULIN N [Suspect]
     Indication: DIABETES MELLITUS
     Dates: end: 19980101
  5. COUMADIN [Concomitant]

REACTIONS (11)
  - ANTIBODY TEST ABNORMAL [None]
  - BLINDNESS [None]
  - CONDITION AGGRAVATED [None]
  - GAIT DISTURBANCE [None]
  - GASTRIC NEOPLASM [None]
  - GASTRIC ULCER HAEMORRHAGE [None]
  - GASTROINTESTINAL HAEMORRHAGE [None]
  - NEUROPATHY PERIPHERAL [None]
  - OPTIC NERVE DISORDER [None]
  - OSTEOARTHRITIS [None]
  - VISUAL ACUITY REDUCED [None]
